FAERS Safety Report 9224844 (Version 1)
Quarter: 2013Q1

REPORT INFORMATION
  Report Type: Spontaneous
  Country: US (occurrence: None)
  Receive Date: 20120914
  Receipt Date: 20120914
  Transmission Date: 20140127
  Serious: Yes (Other)
  Sender: FDA-Public Use
  Company Number: JPI-P-018545

PATIENT
  Age: 75 Year
  Sex: Female

DRUGS (17)
  1. XYREM(500 MILLIGRAM/MILLILITERS, SOLUTION)(SODIUM OXYBATE) [Suspect]
     Indication: CATAPLEXY
     Route: 048
     Dates: start: 20020925
  2. IRON [Concomitant]
  3. BENAZEPRIL HCL [Concomitant]
  4. METOPROLOL [Concomitant]
  5. ESOMEPRAZOLE MAGNESIUM [Concomitant]
  6. SIMVASTATIN [Concomitant]
  7. FUROSEMIDE [Concomitant]
  8. CLONIDINE HYDROCHLORIDE [Concomitant]
  9. PROMETHAZINE HYDROCHLORIDE [Concomitant]
  10. ACETAMINOPHEN W/HYDROCODONE BITARTRATE [Concomitant]
  11. POTASSIUM CHLORIDE [Concomitant]
  12. ALBUTEROL SULFATE [Concomitant]
  13. BUDESONIDE W/FORMOTEROL FUMARATE DIHYDRATE [Concomitant]
  14. ACETYLSALICYLIC ACID [Concomitant]
  15. AMLODIPINE BESYLATE [Concomitant]
  16. HYDRALAZINE HYDROCHLORIDE [Concomitant]
  17. INSULIN RECOMBINANT HUMAN; INSULIN SUSP ISOPHANE RECOMBINANT HUMAN [Concomitant]

REACTIONS (2)
  - Sleep apnoea syndrome [None]
  - Arthralgia [None]
